FAERS Safety Report 13143479 (Version 3)
Quarter: 2017Q1

REPORT INFORMATION
  Report Type: Spontaneous
  Country: US (occurrence: US)
  Receive Date: 20170123
  Receipt Date: 20170126
  Transmission Date: 20170428
  Serious: Yes (Hospitalization)
  Sender: FDA-Public Use
  Company Number: US-BEH-2017077428

PATIENT
  Age: 63 Year
  Sex: Female
  Weight: 77.98 kg

DRUGS (19)
  1. HIZENTRA [Suspect]
     Active Substance: HUMAN IMMUNOGLOBULIN G
     Dosage: UNK
     Route: 058
  2. SINGULAIR [Concomitant]
     Active Substance: MONTELUKAST SODIUM
  3. ESTRADIOL. [Concomitant]
     Active Substance: ESTRADIOL
  4. PAXIL [Concomitant]
     Active Substance: PAROXETINE HYDROCHLORIDE
  5. ATENOLOL. [Concomitant]
     Active Substance: ATENOLOL
  6. POTASSIUM [Concomitant]
     Active Substance: POTASSIUM
  7. DONEPEZIL. [Concomitant]
     Active Substance: DONEPEZIL
  8. VESICARE [Concomitant]
     Active Substance: SOLIFENACIN SUCCINATE
  9. METFORMIN [Concomitant]
     Active Substance: METFORMIN HYDROCHLORIDE
  10. FLOVENT [Concomitant]
     Active Substance: FLUTICASONE PROPIONATE
  11. SEROQUEL [Concomitant]
     Active Substance: QUETIAPINE FUMARATE
  12. ASACOL [Concomitant]
     Active Substance: MESALAMINE
  13. SIMVASTATIN. [Concomitant]
     Active Substance: SIMVASTATIN
  14. HIZENTRA [Suspect]
     Active Substance: HUMAN IMMUNOGLOBULIN G
     Indication: CONGENITAL HYPOGAMMAGLOBULINAEMIA
     Dosage: 15 G, QW
     Route: 058
     Dates: start: 20130729
  15. HIZENTRA [Suspect]
     Active Substance: HUMAN IMMUNOGLOBULIN G
     Dosage: UNK
     Route: 058
  16. PREVACID [Concomitant]
     Active Substance: LANSOPRAZOLE
  17. VITAMIN D3 [Concomitant]
     Active Substance: CHOLECALCIFEROL
  18. KLONOPIN [Concomitant]
     Active Substance: CLONAZEPAM
  19. SUCRALFATE. [Concomitant]
     Active Substance: SUCRALFATE

REACTIONS (1)
  - Pulmonary embolism [Unknown]

NARRATIVE: CASE EVENT DATE: 201701
